FAERS Safety Report 4331017-3 (Version None)
Quarter: 2004Q1

REPORT INFORMATION
  Report Type: 
  Country: None (occurrence: None)
  Receive Date: 20040331
  Receipt Date: 20040323
  Transmission Date: 20041129
  Serious: Yes (Disabling, Other)
  Sender: FDA-Public Use
  Company Number: 2004011143

PATIENT
  Age: 36 Year
  Sex: Female
  Weight: 81.6475 kg

DRUGS (1)
  1. DILANTIN KAPSEAL [Suspect]
     Indication: EPILEPSY
     Dosage: 400 MG DAILY, ORAL
     Route: 048

REACTIONS (3)
  - CONVULSION [None]
  - DRUG LEVEL DECREASED [None]
  - PHARMACEUTICAL PRODUCT COMPLAINT [None]
